FAERS Safety Report 6035598-3 (Version None)
Quarter: 2009Q1

REPORT INFORMATION
  Report Type: 
  Country: None (occurrence: None)
  Receive Date: 20090113
  Receipt Date: 20090102
  Transmission Date: 20090719
  Serious: Yes (Death)
  Sender: FDA-Public Use
  Company Number: US-BAXTER-2009BH000286

PATIENT

DRUGS (1)
  1. FENTANYL CITRATE [Suspect]
     Indication: PAIN
     Route: 042

REACTIONS (3)
  - MEDICATION ERROR [None]
  - OVERDOSE [None]
  - UNRESPONSIVE TO STIMULI [None]
